FAERS Safety Report 9212110 (Version 1)
Quarter: 2013Q2

REPORT INFORMATION
  Report Type: Spontaneous
  Country: US (occurrence: US)
  Receive Date: 20130404
  Receipt Date: 20130404
  Transmission Date: 20140414
  Serious: No
  Sender: FDA-Public Use
  Company Number: US-AMGEN-USASP2013020710

PATIENT
  Age: 31 Year
  Sex: Female
  Weight: 54.88 kg

DRUGS (1)
  1. ENBREL [Suspect]
     Indication: RHEUMATOID ARTHRITIS
     Dosage: 50 MG, WEEKLY
     Route: 058
     Dates: start: 20110417

REACTIONS (2)
  - Tooth disorder [Recovered/Resolved]
  - Rheumatoid arthritis [Not Recovered/Not Resolved]
